FAERS Safety Report 6721616-3 (Version None)
Quarter: 2010Q2

REPORT INFORMATION
  Report Type: 
  Country: None (occurrence: None)
  Receive Date: 20100510
  Receipt Date: 20100428
  Transmission Date: 20101027
  Serious: Yes (Hospitalization, Other)
  Sender: FDA-Public Use
  Company Number: 2010SP001256

PATIENT
  Age: 76 Year
  Sex: Male

DRUGS (6)
  1. LUNESTA [Suspect]
     Indication: INSOMNIA
     Dosage: 2 MG;PRN;ORAL ; 2 MG;HS;ORAL
     Route: 048
     Dates: start: 20090101, end: 20100401
  2. LUNESTA [Suspect]
     Indication: INSOMNIA
     Dosage: 2 MG;PRN;ORAL ; 2 MG;HS;ORAL
     Route: 048
     Dates: start: 20100401, end: 20100401
  3. PLAVIX [Concomitant]
  4. ASPIRIN [Concomitant]
  5. LEXAPRO [Concomitant]
  6. PREV MEDS [Concomitant]

REACTIONS (3)
  - DYSGEUSIA [None]
  - MYOCARDIAL INFARCTION [None]
  - NON-HODGKIN'S LYMPHOMA [None]
